FAERS Safety Report 8723095 (Version 3)
Quarter: 2012Q4

REPORT INFORMATION
  Report Type: Report from Study
  Country: US (occurrence: FR)
  Receive Date: 20120814
  Receipt Date: 20120831
  Transmission Date: 20130627
  Serious: Yes (Other)
  Sender: FDA-Public Use
  Company Number: FR-ABBOTT-12P-056-0967135-00

PATIENT
  Sex: Female

DRUGS (3)
  1. NORVIR [Suspect]
     Indication: ANTIRETROVIRAL THERAPY
     Dosage: Taken at conception
     Route: 048
     Dates: start: 20110124
  2. TRUVADA [Suspect]
     Indication: ANTIRETROVIRAL THERAPY
     Dosage: Taken at conception
     Route: 048
     Dates: start: 20110124
  3. REYATAZ [Suspect]
     Indication: ANTIRETROVIRAL THERAPY
     Dosage: Taken at conception
     Route: 048
     Dates: start: 20110124

REACTIONS (2)
  - Amniotic fluid volume decreased [Unknown]
  - Abortion spontaneous [Unknown]
